FAERS Safety Report 19093781 (Version 1)
Quarter: 2021Q2

REPORT INFORMATION
  Report Type: Report from Study
  Country: US (occurrence: US)
  Receive Date: 20210405
  Receipt Date: 20210405
  Transmission Date: 20210717
  Serious: Yes (Hospitalization, Other)
  Sender: FDA-Public Use
  Company Number: US-BRISTOL-MYERS SQUIBB COMPANY-BMS-2021-029057

PATIENT
  Age: 54 Year
  Sex: Female

DRUGS (2)
  1. HUMIRA [Suspect]
     Active Substance: ADALIMUMAB
     Indication: COLITIS ULCERATIVE
     Dosage: 40 MILLIGRAM, Q2WK
     Route: 058
     Dates: start: 202012
  2. WARFARIN SODIUM. [Suspect]
     Active Substance: WARFARIN SODIUM
     Indication: SYSTEMIC LUPUS ERYTHEMATOSUS
     Dosage: UNK
     Route: 065

REACTIONS (11)
  - Anxiety [Recovering/Resolving]
  - Skin burning sensation [Unknown]
  - Systemic lupus erythematosus [Unknown]
  - Pain of skin [Unknown]
  - Liver disorder [Unknown]
  - Product prescribing issue [Unknown]
  - Vomiting [Recovered/Resolved]
  - Drug level increased [Unknown]
  - Intentional product use issue [Unknown]
  - Colitis ulcerative [Recovering/Resolving]
  - Night sweats [Not Recovered/Not Resolved]

NARRATIVE: CASE EVENT DATE: 2021
